FAERS Safety Report 17080938 (Version 1)
Quarter: 2019Q4

REPORT INFORMATION
  Report Type: Spontaneous
  Country: US (occurrence: US)
  Receive Date: 20191127
  Receipt Date: 20191127
  Transmission Date: 20200122
  Serious: Yes (Other)
  Sender: FDA-Public Use
  Company Number: US-PFIZER INC-2019502321

PATIENT
  Age: 84 Year
  Sex: Female
  Weight: 74.84 kg

DRUGS (7)
  1. ELIQUIS [Suspect]
     Active Substance: APIXABAN
     Indication: THROMBOSIS PROPHYLAXIS
     Dosage: 50 MILLIGRAM, BID
     Route: 048
     Dates: start: 2018
  2. TIKOSYN [Suspect]
     Active Substance: DOFETILIDE
     Dosage: 125 MICROGRAM, BID
     Route: 048
  3. VITAMIN B12 [Concomitant]
     Active Substance: CYANOCOBALAMIN
     Indication: VITAMIN SUPPLEMENTATION
     Dosage: 1000 MICROGRAM, QD
     Route: 048
     Dates: start: 2017
  4. ROSUVASTATIN CALCIUM. [Suspect]
     Active Substance: ROSUVASTATIN CALCIUM
     Indication: BLOOD CHOLESTEROL INCREASED
     Dosage: 5 MILLIGRAM, QD
     Route: 048
     Dates: start: 2018
  5. LEVOTHYROXINE. [Concomitant]
     Active Substance: LEVOTHYROXINE
     Indication: THYROID DISORDER
     Dosage: 50 MICROGRAM, QD
     Route: 048
  6. VITAMIN C [ASCORBIC ACID;BIOFLAVONOIDS] [Concomitant]
     Indication: NASOPHARYNGITIS
     Dosage: 1000 MILLIGRAM, QD
     Route: 048
  7. COQ 10 [Concomitant]
     Active Substance: UBIDECARENONE
     Dosage: 100 MILLIGRAM, QD
     Route: 048
     Dates: start: 2018

REACTIONS (3)
  - Muscle spasms [Unknown]
  - Cardiac disorder [Unknown]
  - Prescribed overdose [Unknown]
